FAERS Safety Report 5209587-2 (Version None)
Quarter: 2006Q4

REPORT INFORMATION
  Report Type: 
  Country: None (occurrence: None)
  Receive Date: 20061122
  Receipt Date: 20051221
  Transmission Date: 20070319
  Serious: Yes (Other)
  Sender: FDA-Public Use
  Company Number: 2005161963

PATIENT
  Age: 46 Year
  Sex: Male
  Weight: 48.0813 kg

DRUGS (4)
  1. LIPITOR [Suspect]
     Indication: BLOOD CHOLESTEROL INCREASED
     Dosage: 10 MG (10 MG, 1 IN 1 D)
     Dates: start: 20030101, end: 20040101
  2. ULTRAM [Suspect]
     Indication: ILL-DEFINED DISORDER
  3. NIASPAN [Suspect]
     Indication: BLOOD CHOLESTEROL INCREASED
  4. MULTI-VITAMINS [Concomitant]

REACTIONS (7)
  - BLOOD CHOLESTEROL [None]
  - FLUSHING [None]
  - HEPATIC ENZYME INCREASED [None]
  - INSOMNIA [None]
  - LABORATORY TEST ABNORMAL [None]
  - MYALGIA [None]
  - RENAL DISORDER [None]
